FAERS Safety Report 5594533-2 (Version None)
Quarter: 2008Q1

REPORT INFORMATION
  Report Type: 
  Country: None (occurrence: None)
  Receive Date: 20080117
  Receipt Date: 20080110
  Transmission Date: 20080703
  Serious: Yes (Hospitalization)
  Sender: FDA-Public Use
  Company Number: BE-JNJFOC-20071204917

PATIENT
  Age: 16 Year
  Sex: Male
  Weight: 94 kg

DRUGS (2)
  1. RISPERDAL [Suspect]
     Indication: AUTISM SPECTRUM DISORDER
     Route: 048
  2. RISPERDAL [Suspect]
     Indication: SCHIZOPHRENIA
     Route: 048

REACTIONS (2)
  - BLOOD CHOLESTEROL INCREASED [None]
  - WEIGHT INCREASED [None]
